FAERS Safety Report 14175117 (Version 2)
Quarter: 2017Q4

REPORT INFORMATION
  Report Type: Report from Study
  Country: US (occurrence: US)
  Receive Date: 20171109
  Receipt Date: 20171128
  Transmission Date: 20180321
  Serious: No
  Sender: FDA-Public Use
  Company Number: US-ARIAD PHARMACEUTICALS, INC-2017US009105

PATIENT
  Sex: Male
  Weight: 89 kg

DRUGS (1)
  1. PONATINIB [Suspect]
     Active Substance: PONATINIB
     Indication: CHRONIC MYELOID LEUKAEMIA
     Dosage: 45 MG, QD
     Route: 048
     Dates: start: 20170927

REACTIONS (15)
  - Pancreatic disorder [Unknown]
  - Blood glucose increased [Unknown]
  - Dyspnoea [Unknown]
  - Dry mouth [Unknown]
  - Dry skin [Unknown]
  - Abdominal pain upper [Unknown]
  - Oropharyngeal pain [Unknown]
  - Urticaria [Unknown]
  - Back pain [Unknown]
  - Erectile dysfunction [Unknown]
  - Blister [Unknown]
  - Dysphagia [Unknown]
  - Chest pain [Unknown]
  - Vision blurred [Unknown]
  - Rash [Unknown]
